FAERS Safety Report 7757170-7 (Version None)
Quarter: 2011Q3

REPORT INFORMATION
  Report Type: 
  Country: None (occurrence: None)
  Receive Date: 20110916
  Receipt Date: 20110908
  Transmission Date: 20111222
  Serious: Yes (Hospitalization)
  Sender: FDA-Public Use
  Company Number: PHHO2011US14391

PATIENT
  Sex: Female
  Weight: 130 kg

DRUGS (5)
  1. FANAPT [Suspect]
     Dosage: 12 MG, UNK
     Route: 048
     Dates: start: 20110820, end: 20110822
  2. FANAPT [Suspect]
     Dosage: 8 MG, UNK
     Route: 048
     Dates: start: 20110819, end: 20110819
  3. FANAPT [Suspect]
     Indication: SCHIZOPHRENIA
     Dosage: 2 MG, UNK
     Route: 048
     Dates: start: 20110817, end: 20110817
  4. FANAPT [Suspect]
     Dosage: 4 MG, UNK
     Route: 048
     Dates: start: 20110818, end: 20110818
  5. ABILIFY [Concomitant]
     Indication: SCHIZOPHRENIA
     Dosage: 15 MG, QD
     Route: 048
     Dates: start: 20100715, end: 20110727

REACTIONS (2)
  - PNEUMONIA [None]
  - RESPIRATORY FAILURE [None]
